FAERS Safety Report 5948779-1 (Version None)
Quarter: 2008Q4

REPORT INFORMATION
  Report Type: 
  Country: None (occurrence: None)
  Receive Date: 20081111
  Receipt Date: 20081103
  Transmission Date: 20090506
  Serious: Yes (Other)
  Sender: FDA-Public Use
  Company Number: ES-ROCHE-594841

PATIENT
  Age: 66 Year
  Sex: Female

DRUGS (2)
  1. XELODA [Suspect]
     Indication: RECTAL CANCER METASTATIC
     Dosage: DOSAGE: 3G/CYCLE. FORM: FILM COATED TABLETS.
     Route: 048
     Dates: start: 20070716, end: 20080611
  2. IRINOTECAN HYDROCHLORIDE [Suspect]
     Indication: RECTAL CANCER METASTATIC
     Dosage: DOSAGE: 360MG/CYCLE
     Route: 042
     Dates: start: 20070716, end: 20080611

REACTIONS (1)
  - OPTIC ISCHAEMIC NEUROPATHY [None]
